FAERS Safety Report 10172831 (Version 4)
Quarter: 2014Q2

REPORT INFORMATION
  Report Type: Spontaneous
  Country: US (occurrence: US)
  Receive Date: 20140515
  Receipt Date: 20140613
  Transmission Date: 20141212
  Serious: Yes (Hospitalization)
  Sender: FDA-Public Use
  Company Number: US-GLAXOSMITHKLINE-A1073125A

PATIENT
  Age: 61 Year
  Sex: Female

DRUGS (22)
  1. ADVAIR [Suspect]
     Indication: CHRONIC OBSTRUCTIVE PULMONARY DISEASE
     Dosage: 1PUFF TWICE PER DAY
     Route: 055
     Dates: start: 2007
  2. VITAMIN D [Concomitant]
  3. COMBIVENT [Concomitant]
  4. LEVETIRACETAM [Concomitant]
  5. FUROSEMIDE [Concomitant]
  6. CARVEDILOL [Concomitant]
  7. DOCUSATE [Concomitant]
  8. FERROUS SULFATE [Concomitant]
  9. UNKNOWN MEDICATION [Concomitant]
  10. CALCIUM [Concomitant]
  11. OMEPRAZOLE [Concomitant]
  12. ASPIRIN [Concomitant]
  13. PRIMIDONE [Concomitant]
  14. CLONIDINE [Concomitant]
  15. CITALOPRAM [Concomitant]
  16. BISACODYL [Concomitant]
  17. VITAMIN C [Concomitant]
  18. HYDROCODONE/APAP [Concomitant]
  19. APAP [Concomitant]
  20. CALCIUM CITRATE [Concomitant]
  21. CLOPIDOGREL [Concomitant]
  22. ALBUTEROL [Concomitant]

REACTIONS (15)
  - Myocardial infarction [Not Recovered/Not Resolved]
  - Cerebrovascular accident [Not Recovered/Not Resolved]
  - Convulsion [Not Recovered/Not Resolved]
  - Coronary artery bypass [Not Recovered/Not Resolved]
  - Stent placement [Not Recovered/Not Resolved]
  - Haemorrhagic stroke [Not Recovered/Not Resolved]
  - Tracheal operation [Not Recovered/Not Resolved]
  - Asthma [Not Recovered/Not Resolved]
  - Chronic obstructive pulmonary disease [Not Recovered/Not Resolved]
  - Chest pain [Not Recovered/Not Resolved]
  - Cardiac disorder [Not Recovered/Not Resolved]
  - Condition aggravated [Not Recovered/Not Resolved]
  - Arterial therapeutic procedure [Unknown]
  - Off label use [Not Recovered/Not Resolved]
  - Investigation [Unknown]
